FAERS Safety Report 8042632-8 (Version None)
Quarter: 2012Q1

REPORT INFORMATION
  Report Type: 
  Country: None (occurrence: None)
  Receive Date: 20120112
  Receipt Date: 20120105
  Transmission Date: 20120608
  Serious: Yes (Hospitalization, Other)
  Sender: FDA-Public Use
  Company Number: US-RB-032923-12

PATIENT
  Age: 56 Year
  Sex: Female

DRUGS (2)
  1. DIOVAN [Concomitant]
     Indication: HYPERTENSION
  2. MUCINEX [Suspect]
     Indication: RESPIRATORY TRACT CONGESTION
     Dosage: 12/31/11 IN THE EVENING
     Route: 048

REACTIONS (4)
  - DIZZINESS [None]
  - MIGRAINE [None]
  - SYNCOPE [None]
  - HYPOTENSION [None]
